FAERS Safety Report 9437268 (Version 3)
Quarter: 2013Q3

REPORT INFORMATION
  Report Type: Spontaneous
  Country: US (occurrence: None)
  Receive Date: 20130731
  Receipt Date: 20130926
  Transmission Date: 20140515
  Serious: Yes (Death)
  Sender: FDA-Public Use
  Company Number: HYP201307-000036

PATIENT
  Age: 87 Year
  Sex: Male
  Weight: 113 kg

DRUGS (21)
  1. RAVICTI [Suspect]
     Indication: HYPERAMMONAEMIA
     Route: 048
     Dates: start: 201306, end: 20130710
  2. AMIODARONE [Concomitant]
  3. LASIX [Concomitant]
  4. ZAROXOLYN [Concomitant]
  5. RIFAXIMIN [Concomitant]
  6. COUMADIN [Concomitant]
  7. FERROUS GLUCONATE [Concomitant]
  8. DIGOXIN [Concomitant]
  9. POTASSIUM CHLORIDE [Concomitant]
  10. DILANTIN [Concomitant]
  11. PHENOBARBITOL [Concomitant]
  12. LISINOPRIL [Concomitant]
  13. ASPIRIN [Suspect]
  14. NEPHROCAPS [Concomitant]
  15. FOLIC ACID [Concomitant]
  16. DUONEB [Concomitant]
  17. CIPRO [Concomitant]
  18. SPIRONOLACTONE [Concomitant]
  19. METROPROLOL [Concomitant]
  20. BISACODYL [Concomitant]
  21. ACETAMINOPHEN [Concomitant]

REACTIONS (8)
  - Hepatic encephalopathy [None]
  - Cardiac failure congestive [None]
  - Clostridium test positive [None]
  - Cardiomegaly [None]
  - Ammonia increased [None]
  - Off label use [None]
  - Metabolic disorder [None]
  - Bradycardia [None]
